FAERS Safety Report 17306280 (Version 1)
Quarter: 2020Q1

REPORT INFORMATION
  Report Type: Spontaneous
  Country: US (occurrence: US)
  Receive Date: 20200106
  Receipt Date: 20200106
  Transmission Date: 20200409
  Serious: Yes (Hospitalization)
  Sender: FDA-Public Use
  Company Number: None

PATIENT
  Age: 92 Year
  Sex: Male
  Weight: 63 kg

DRUGS (1)
  1. WARFARIN (WARFARIN NA (EXELAN) 5MG TAB [Suspect]
     Active Substance: WARFARIN
     Indication: ATRIAL FIBRILLATION
     Route: 048
     Dates: start: 20000520, end: 20111203

REACTIONS (3)
  - Haemoptysis [None]
  - Epistaxis [None]
  - Haemorrhage [None]

NARRATIVE: CASE EVENT DATE: 20101203
